FAERS Safety Report 7988314-X (Version None)
Quarter: 2011Q4

REPORT INFORMATION
  Report Type: 
  Country: None (occurrence: None)
  Receive Date: 20111216
  Receipt Date: 20111215
  Transmission Date: 20120403
  Serious: Yes (Hospitalization)
  Sender: FDA-Public Use
  Company Number: US-ABBOTT-11P-163-0862043-00

PATIENT
  Age: 79 Year
  Sex: Female

DRUGS (4)
  1. SPIRONOLACTONE [Concomitant]
     Indication: PRODUCT USED FOR UNKNOWN INDICATION
  2. HUMIRA [Suspect]
     Indication: RHEUMATOID ARTHRITIS
     Dates: start: 20110908
  3. MANY OTHER MEDICATIONS [Concomitant]
     Indication: PRODUCT USED FOR UNKNOWN INDICATION
  4. LASIX [Concomitant]
     Indication: SWELLING
     Dosage: 40MG AND 20MG EVERY NIGHT DAILY

REACTIONS (6)
  - MYALGIA [None]
  - BACK PAIN [None]
  - ASTHENIA [None]
  - PAIN IN EXTREMITY [None]
  - PAIN [None]
  - BLOOD POTASSIUM INCREASED [None]
